FAERS Safety Report 19519391 (Version 1)
Quarter: 2021Q3

REPORT INFORMATION
  Report Type: Spontaneous
  Country: US (occurrence: US)
  Receive Date: 20210712
  Receipt Date: 20210712
  Transmission Date: 20211014
  Serious: Yes (Death, Other)
  Sender: FDA-Public Use
  Company Number: US-GLAXOSMITHKLINE-US2021GSK147582

PATIENT
  Sex: Female

DRUGS (8)
  1. RANITIDINE. [Suspect]
     Active Substance: RANITIDINE
     Indication: DYSPEPSIA
     Dosage: UNK, TID
     Route: 065
     Dates: start: 200701, end: 202005
  2. ZANTAC [Suspect]
     Active Substance: RANITIDINE HYDROCHLORIDE
     Indication: DYSPEPSIA
     Dosage: UNK, TID
     Route: 065
     Dates: start: 201203, end: 202005
  3. RANITIDINE CAPSULE [Suspect]
     Active Substance: RANITIDINE
     Indication: DYSPEPSIA
     Dosage: UNK, TID
     Route: 065
     Dates: start: 200701, end: 202005
  4. ZANTAC [Suspect]
     Active Substance: RANITIDINE HYDROCHLORIDE
     Indication: DYSPEPSIA
     Dosage: UNK UNK, TID
     Route: 065
     Dates: start: 201203, end: 202005
  5. RANITIDINE. [Suspect]
     Active Substance: RANITIDINE
     Indication: DYSPEPSIA
     Dosage: UNK, TID
     Route: 065
     Dates: start: 200701, end: 202005
  6. RANITIDINE CAPSULE [Suspect]
     Active Substance: RANITIDINE
     Dosage: UNK UNK, TID
     Route: 065
     Dates: start: 201203, end: 202005
  7. ZANTAC [Suspect]
     Active Substance: RANITIDINE HYDROCHLORIDE
     Indication: DYSPEPSIA
     Dosage: UNK, TID
     Route: 065
     Dates: start: 201203, end: 202005
  8. RANITIDINE. [Suspect]
     Active Substance: RANITIDINE
     Indication: DYSPEPSIA
     Dosage: UNK, TID
     Route: 065
     Dates: start: 200701, end: 202005

REACTIONS (5)
  - Bone cancer [Unknown]
  - Neoplasm malignant [Fatal]
  - Brain neoplasm malignant [Unknown]
  - Lung neoplasm malignant [Unknown]
  - Gastric cancer [Unknown]
